FAERS Safety Report 23592448 (Version 1)
Quarter: 2024Q1

REPORT INFORMATION
  Report Type: Spontaneous
  Country: US (occurrence: US)
  Receive Date: 20240304
  Receipt Date: 20240304
  Transmission Date: 20240410
  Serious: No
  Sender: FDA-Public Use
  Company Number: US-MYLANLABS-2024M1017529

PATIENT
  Age: 65 Year
  Sex: Female
  Weight: 97.52 kg

DRUGS (1)
  1. TYRVAYA [Suspect]
     Active Substance: VARENICLINE TARTRATE
     Indication: Dry eye
     Dosage: UNK, BID
     Route: 045
     Dates: start: 202312

REACTIONS (4)
  - Oropharyngeal pain [Unknown]
  - Heart rate increased [Recovered/Resolved]
  - Throat irritation [Unknown]
  - Product identification number issue [Unknown]

NARRATIVE: CASE EVENT DATE: 20240101
